FAERS Safety Report 14706366 (Version 5)
Quarter: 2018Q3

REPORT INFORMATION
  Report Type: Spontaneous
  Country: CA (occurrence: CA)
  Receive Date: 20180402
  Receipt Date: 20180913
  Transmission Date: 20181010
  Serious: Yes (Hospitalization, Other)
  Sender: FDA-Public Use
  Company Number: CA-CELLTRION INC.-2017CA006751

PATIENT

DRUGS (34)
  1. INFLECTRA [Suspect]
     Active Substance: INFLIXIMAB-DYYB
     Dosage: 300 MG (EVERY 8 WEEKS)
     Route: 042
     Dates: start: 20180209
  2. ASCORBIC ACID. [Concomitant]
     Active Substance: ASCORBIC ACID
     Dosage: UNK
  3. LEVOTHYROXINE SODIUM. [Concomitant]
     Active Substance: LEVOTHYROXINE SODIUM
     Dosage: UNK
  4. VITAMIN B1 [Concomitant]
     Active Substance: THIAMINE HYDROCHLORIDE
  5. MUPIROCIN. [Concomitant]
     Active Substance: MUPIROCIN
  6. BETAMETHASONE VALERATE. [Concomitant]
     Active Substance: BETAMETHASONE VALERATE
  7. INFLECTRA [Suspect]
     Active Substance: INFLIXIMAB-DYYB
     Dosage: 300 MG, CYCLIC (EVERY 6 WEEKS)
     Route: 042
     Dates: start: 20180323
  8. ONDANSETRON [Concomitant]
     Active Substance: ONDANSETRON
     Dosage: UNK
  9. ZOPICLONE [Concomitant]
     Active Substance: ZOPICLONE
  10. FERROUS GLUCONATE [Concomitant]
     Active Substance: FERROUS GLUCONATE
  11. MINOCYCLINE HCL [Concomitant]
     Active Substance: MINOCYCLINE HYDROCHLORIDE
  12. INFLECTRA [Suspect]
     Active Substance: INFLIXIMAB-DYYB
     Dosage: 250 MG, CYCLIC (EVERY 6 WEEKS)
     Route: 042
     Dates: start: 20180504
  13. ACETAMINOFEN [Concomitant]
     Active Substance: ACETAMINOPHEN
     Dosage: UNK
  14. PROPRANOLOL HCL A [Concomitant]
     Dosage: UNK
  15. VITAMINS WITH MINERALS [Concomitant]
     Active Substance: MINERALS\VITAMINS
  16. SUMATRIPTAN SUCCINATE. [Concomitant]
     Active Substance: SUMATRIPTAN SUCCINATE
  17. OXYCODONE HYDROCHLORIDE. [Concomitant]
     Active Substance: OXYCODONE HYDROCHLORIDE
  18. ATROPINE. [Concomitant]
     Active Substance: ATROPINE
  19. INFLECTRA [Suspect]
     Active Substance: INFLIXIMAB-DYYB
     Indication: CROHN^S DISEASE
     Dosage: 400 MG, CYCLIC (EVERY 0, 2,6, THEN EVERY 8 WEEKS)
     Route: 042
     Dates: start: 20170517
  20. INFLECTRA [Suspect]
     Active Substance: INFLIXIMAB-DYYB
     Dosage: 300 MG, CYCLIC , (EVERY 8 WEEKS)
     Route: 042
     Dates: start: 20170517
  21. INFLECTRA [Suspect]
     Active Substance: INFLIXIMAB-DYYB
     Dosage: 400 MG, CYCLIC (EVERY 0, 2,  6, THEN EVERY 8 WEEKS)
     Route: 042
     Dates: start: 20171017
  22. INFLECTRA [Suspect]
     Active Substance: INFLIXIMAB-DYYB
     Dosage: 300 MG (EVERY 8 WEEKS)
     Route: 042
     Dates: start: 20180209
  23. ETIDRONATE DISODIUM W/ETIDRONIC ACID [Concomitant]
     Dosage: UNK
  24. PANTOPRAZOLE [Concomitant]
     Active Substance: PANTOPRAZOLE
     Dosage: UNK
  25. FLUOXETINE HCL [Concomitant]
     Active Substance: FLUOXETINE HYDROCHLORIDE
  26. DIPHENOXYLATE HYDROCHLORIDE [Concomitant]
     Active Substance: DIPHENOXYLATE HYDROCHLORIDE
  27. LORAZEPAM. [Concomitant]
     Active Substance: LORAZEPAM
     Dosage: UNK
  28. NORTRIPTYLINE [Concomitant]
     Active Substance: NORTRIPTYLINE
  29. BACLOFEN. [Concomitant]
     Active Substance: BACLOFEN
  30. CLOBETASOL [Concomitant]
     Active Substance: CLOBETASOL
  31. ENSURE [Concomitant]
     Active Substance: AMINO ACIDS\DEXTROSE\ELECTROLYTES NOS\SOYBEAN OIL\VITAMINS
     Dosage: UNK
     Route: 065
  32. METRONIDAZOLE. [Concomitant]
     Active Substance: METRONIDAZOLE
     Dosage: UNK
  33. VITAMIN D                          /00107901/ [Concomitant]
     Active Substance: ERGOCALCIFEROL
  34. ACCUTANE [Concomitant]
     Active Substance: ISOTRETINOIN

REACTIONS (13)
  - Nausea [Recovering/Resolving]
  - Anal fissure [Unknown]
  - Abdominal mass [Unknown]
  - Product use issue [Unknown]
  - Hypotension [Unknown]
  - Diarrhoea [Recovering/Resolving]
  - Rectal haemorrhage [Unknown]
  - Incorrect dose administered [Unknown]
  - Headache [Unknown]
  - Malaise [Unknown]
  - Pain in extremity [Unknown]
  - Antibody test positive [Unknown]
  - Drug level decreased [Unknown]

NARRATIVE: CASE EVENT DATE: 20170517
